FAERS Safety Report 6211533-X (Version None)
Quarter: 2009Q2

REPORT INFORMATION
  Report Type: 
  Country: None (occurrence: None)
  Receive Date: 20090528
  Receipt Date: 20090522
  Transmission Date: 20091009
  Serious: Yes (Life-Threatening, Other)
  Sender: FDA-Public Use
  Company Number: 60757

PATIENT
  Sex: Male

DRUGS (1)
  1. PROPOFOL [Suspect]
     Indication: ANAESTHESIA

REACTIONS (4)
  - HEPATITIS C [None]
  - MEDICATION ERROR [None]
  - TRANSMISSION OF AN INFECTIOUS AGENT VIA A MEDICINAL PRODUCT [None]
  - WRONG TECHNIQUE IN DRUG USAGE PROCESS [None]
